FAERS Safety Report 25066143 (Version 1)
Quarter: 2025Q1

REPORT INFORMATION
  Report Type: Spontaneous
  Country: US (occurrence: US)
  Receive Date: 20250312
  Receipt Date: 20250312
  Transmission Date: 20250408
  Serious: No
  Sender: AMGEN
  Company Number: US-AMGEN-USASP2025044079

PATIENT
  Sex: Male

DRUGS (1)
  1. REPATHA [Suspect]
     Active Substance: EVOLOCUMAB
     Indication: Product used for unknown indication
     Route: 058
     Dates: start: 202502

REACTIONS (2)
  - Nasopharyngitis [Unknown]
  - Back pain [Unknown]

NARRATIVE: CASE EVENT DATE: 20250101
